FAERS Safety Report 8956501 (Version 3)
Quarter: 2013Q2

REPORT INFORMATION
  Report Type: Spontaneous
  Country: ES (occurrence: ES)
  Receive Date: 20121210
  Receipt Date: 20130426
  Transmission Date: 20140414
  Serious: Yes (Life-Threatening, Hospitalization)
  Sender: FDA-Public Use
  Company Number: ES-PFIZER INC-2012306629

PATIENT
  Age: 66 Year
  Sex: Male

DRUGS (13)
  1. PANTOPRAZOLE [Suspect]
     Dosage: 280 MG, (1 IN 1 TOTAL)
     Route: 065
     Dates: start: 20121105
  2. BISOPROLOL FUMARATE [Suspect]
     Dosage: 50 MG, (1 IN 1 TOTAL)
     Dates: start: 20121105
  3. ATORVASTATIN CALCIUM [Suspect]
     Dosage: 80 MG, (1 IN 1 D)
     Dates: start: 20121105
  4. LIBERTEK [Suspect]
     Indication: CHRONIC OBSTRUCTIVE PULMONARY DISEASE
     Dosage: 500 UG, 1X/DAY
     Route: 065
  5. LIBERTEK [Suspect]
     Dosage: 1000 UG, 2X/DAY
     Dates: end: 201211
  6. TRANXILIUM [Suspect]
     Dosage: 60 MG, (1 IN 1 TOTAL)
     Dates: start: 20121105
  7. TORASEMIDE [Suspect]
     Dosage: 150 MG, (1 IN 1 TOTAL)
     Dates: start: 20121105
  8. ADIRO [Suspect]
     Dosage: 600 MG, (1 IN 1 TOTAL)
     Dates: start: 20121105
  9. NOLOTIL /SPA/ [Suspect]
     Dosage: 7 DF, (1 IN 1 TOTAL)
     Dates: start: 20121105
  10. CILOSTAZOL [Suspect]
     Dosage: 2.8 GM, (1 IN 1 TOTAL)
     Dates: start: 20121105
  11. ATROVENT [Concomitant]
     Indication: CHRONIC OBSTRUCTIVE PULMONARY DISEASE
     Dosage: 3 PUFF(S), 3 IN 1 D
  12. PLUSVENT [Concomitant]
     Indication: CHRONIC OBSTRUCTIVE PULMONARY DISEASE
     Dosage: 4 DF, 2X/DAY
  13. SALBUTAMOL [Concomitant]
     Indication: CHRONIC OBSTRUCTIVE PULMONARY DISEASE
     Dosage: 1 DF, AS NEEDED

REACTIONS (10)
  - Suicide attempt [Unknown]
  - Depression [Unknown]
  - Intentional overdose [Unknown]
  - Confusional state [Unknown]
  - Drug administration error [Unknown]
  - Hypotension [Unknown]
  - Cerebral atrophy [None]
  - Cerebral ischaemia [None]
  - Incorrect dose administered [None]
  - Treatment noncompliance [None]
